FAERS Safety Report 4729227-6 (Version None)
Quarter: 2005Q3

REPORT INFORMATION
  Report Type: 
  Country: None (occurrence: None)
  Receive Date: 20050729
  Receipt Date: 20040726
  Transmission Date: 20060218
  Serious: Yes (Other)
  Sender: FDA-Public Use
  Company Number: US-GLAXOSMITHKLINE-A0519725A

PATIENT
  Age: 43 Year
  Sex: Female
  Weight: 59.5 kg

DRUGS (9)
  1. IMITREX [Suspect]
     Indication: MIGRAINE
     Route: 048
     Dates: start: 20040717, end: 20040718
  2. ALESSE (BIRTH CONTROL) [Concomitant]
  3. ALLEGRA [Concomitant]
     Dosage: 180MG PER DAY
     Route: 048
  4. EPIPEN [Concomitant]
  5. NEURONTIN [Concomitant]
     Indication: MIGRAINE
     Dosage: 300MG PER DAY
  6. PROZAC [Concomitant]
     Indication: DEPRESSION
     Dosage: 20MG PER DAY
     Route: 048
  7. VIOXX [Concomitant]
     Indication: MIGRAINE
     Dosage: 25MG PER DAY
     Route: 048
  8. VICODIN [Concomitant]
     Indication: MIGRAINE
     Route: 048
  9. PERCOCET [Concomitant]
     Indication: MIGRAINE
     Route: 048

REACTIONS (3)
  - ANGIONEUROTIC OEDEMA [None]
  - EYE SWELLING [None]
  - SWELLING FACE [None]
